FAERS Safety Report 20680353 (Version 1)
Quarter: 2022Q2

REPORT INFORMATION
  Report Type: Report from Study
  Country: BG (occurrence: BG)
  Receive Date: 20220406
  Receipt Date: 20220406
  Transmission Date: 20220720
  Serious: Yes (Hospitalization, Other)
  Sender: FDA-Public Use
  Company Number: BG-BAYER-2022A046395

PATIENT
  Age: 65 Year
  Sex: Male

DRUGS (9)
  1. STIVARGA [Suspect]
     Active Substance: REGORAFENIB
     Indication: Rectal cancer
     Dosage: DAILY DOSE 160 MG 3/1 PER WEEK
     Route: 048
     Dates: start: 20211116, end: 20220306
  2. CEFTRIAXONE [Concomitant]
     Active Substance: CEFTRIAXONE
     Dosage: DAILY DOSE 2 G
  3. MEDAXONE [Concomitant]
     Dosage: UNK
  4. URSODIOL [Concomitant]
     Active Substance: URSODIOL
     Dosage: UNK
  5. DIETARY SUPPLEMENT\HERBALS\MILK THISTLE [Concomitant]
     Active Substance: DIETARY SUPPLEMENT\HERBALS\MILK THISTLE
     Dosage: UNK
  6. ETHAMSYLATE [Concomitant]
     Active Substance: ETHAMSYLATE
     Dosage: UNK
  7. CALCIUM GLUCONATE [Concomitant]
     Active Substance: CALCIUM GLUCONATE
     Dosage: UNK
  8. H2 BLOCKER [CIMETIDINE HYDROCHLORIDE] [Concomitant]
     Dosage: UNK
  9. HYDROCHLOROTHIAZIDE [Concomitant]
     Active Substance: HYDROCHLOROTHIAZIDE
     Dosage: UNK

REACTIONS (11)
  - Rectal cancer metastatic [None]
  - Intestinal haemorrhage [None]
  - Colostomy [None]
  - Stoma site haemorrhage [None]
  - Haemostasis [None]
  - Blood pressure increased [None]
  - Red blood cell transfusion [None]
  - Transfusion [None]
  - Metastases to liver [None]
  - Metastases to adrenals [None]
  - Cholelithiasis [None]

NARRATIVE: CASE EVENT DATE: 20220307
